FAERS Safety Report 8801045 (Version 2)
Quarter: 2012Q4

REPORT INFORMATION
  Report Type: 
  Country: US (occurrence: US)
  Receive Date: 20120921
  Receipt Date: 20121114
  Transmission Date: 20130627
  Serious: Yes (Hospitalization)
  Sender: FDA-Public Use
  Company Number: US-GLAXOSMITHKLINE-A0994068A

PATIENT
  Age: 55 Year
  Sex: Male
  Weight: 118.2 kg

DRUGS (4)
  1. ADVAIR [Suspect]
     Indication: CHRONIC OBSTRUCTIVE PULMONARY DISEASE
     Route: 065
     Dates: end: 201012
  2. MOTRIN [Suspect]
     Indication: PAIN
     Route: 065
     Dates: start: 2009
  3. DIURETIC [Suspect]
     Route: 065
  4. INHALERS [Concomitant]
     Indication: CHRONIC OBSTRUCTIVE PULMONARY DISEASE

REACTIONS (1)
  - Adverse event [Unknown]
